FAERS Safety Report 7764067-5 (Version None)
Quarter: 2011Q3

REPORT INFORMATION
  Report Type: 
  Country: None (occurrence: None)
  Receive Date: 20110921
  Receipt Date: 20110913
  Transmission Date: 20111222
  Serious: Yes (Hospitalization)
  Sender: FDA-Public Use
  Company Number: JP-JNJFOC-20110710150

PATIENT
  Sex: Female
  Weight: 41 kg

DRUGS (6)
  1. DOXORUBICIN HCL [Suspect]
     Indication: OVARIAN CANCER RECURRENT
     Route: 042
     Dates: start: 20110519, end: 20110519
  2. HUMALOG [Concomitant]
     Indication: PROPHYLAXIS
     Dosage: 8 DF
     Route: 058
     Dates: start: 20110716, end: 20110718
  3. FAMOTIDINE [Concomitant]
     Indication: PROPHYLAXIS AGAINST GASTROINTESTINAL ULCER
     Route: 048
     Dates: start: 20110728
  4. ALENDRONATE SODIUM [Concomitant]
     Indication: OSTEOPOROSIS PROPHYLAXIS
     Route: 048
     Dates: start: 20110712
  5. SULFAMETHOXAZOLE [Concomitant]
     Indication: PROPHYLAXIS
     Dosage: 1 DF
     Route: 048
     Dates: start: 20110712
  6. DOXORUBICIN HCL [Suspect]
     Route: 042
     Dates: start: 20110616, end: 20110616

REACTIONS (1)
  - INTERSTITIAL LUNG DISEASE [None]
